FAERS Safety Report 15113166 (Version 2)
Quarter: 2018Q3

REPORT INFORMATION
  Report Type: Spontaneous
  Country: ES (occurrence: ES)
  Receive Date: 20180706
  Receipt Date: 20180713
  Transmission Date: 20181010
  Serious: Yes (Other)
  Sender: FDA-Public Use
  Company Number: ES-ROCHE-2146601

PATIENT
  Age: 53 Year
  Sex: Female

DRUGS (12)
  1. ADVAGRAF [Suspect]
     Active Substance: TACROLIMUS
     Indication: IMMUNOSUPPRESSANT DRUG THERAPY
     Dosage: 4?6MG, UNKNOWN FREQ.
     Route: 048
  2. PREDNISONE. [Suspect]
     Active Substance: PREDNISONE
     Dosage: 20 MG, ONCE DAILY (EVERY 24 HOURS)
     Route: 065
  3. MYCOPHENOLATE MOFETIL. [Suspect]
     Active Substance: MYCOPHENOLATE MOFETIL
     Route: 065
  4. PREDNISONE. [Suspect]
     Active Substance: PREDNISONE
     Route: 065
  5. ADVAGRAF [Suspect]
     Active Substance: TACROLIMUS
     Dosage: 3 MG, ONCE DAILY (EVERY 24 HOURS)
     Route: 048
  6. PREDNISONE. [Suspect]
     Active Substance: PREDNISONE
     Indication: IMMUNOSUPPRESSANT DRUG THERAPY
     Route: 065
  7. ADVAGRAF [Suspect]
     Active Substance: TACROLIMUS
     Dosage: 4 MG, ONCE DAILY (EVERY 24 HOURS)
     Route: 048
  8. ADVAGRAF [Suspect]
     Active Substance: TACROLIMUS
     Dosage: 4?6MG, UNKNOWN FREQ.
     Route: 048
  9. ADVAGRAF [Suspect]
     Active Substance: TACROLIMUS
     Route: 065
  10. BASILIXIMAB [Concomitant]
     Active Substance: BASILIXIMAB
     Indication: IMMUNOSUPPRESSANT DRUG THERAPY
     Route: 065
  11. MYCOPHENOLATE MOFETIL. [Suspect]
     Active Substance: MYCOPHENOLATE MOFETIL
     Indication: IMMUNOSUPPRESSANT DRUG THERAPY
     Route: 065
  12. ADVAGRAF [Suspect]
     Active Substance: TACROLIMUS
     Dosage: 3 MG, ONCE DAILY (EVERY 24 HOURS)
     Route: 048

REACTIONS (5)
  - Alanine aminotransferase increased [Unknown]
  - Gamma-glutamyltransferase increased [Unknown]
  - Liver transplant rejection [Recovered/Resolved]
  - Aspartate aminotransferase increased [Unknown]
  - Immunosuppressant drug level decreased [Unknown]
